FAERS Safety Report 9105820 (Version 1)
Quarter: 2013Q1

REPORT INFORMATION
  Report Type: Report from Study
  Country: US (occurrence: US)
  Receive Date: 20130220
  Receipt Date: 20130220
  Transmission Date: 20140127
  Serious: Yes (Hospitalization)
  Sender: FDA-Public Use
  Company Number: US-SANOFI-AVENTIS-2013SA013644

PATIENT
  Age: 48 Year
  Sex: Male
  Weight: 131 kg

DRUGS (8)
  1. HYDROXYCHLOROQUINE [Suspect]
     Indication: MALIGNANT MELANOMA OF SITES OTHER THAN SKIN
     Route: 048
     Dates: start: 20110509, end: 20110728
  2. TEMSIROLIMUS [Suspect]
     Indication: MALIGNANT MELANOMA OF SITES OTHER THAN SKIN
     Route: 042
     Dates: start: 20110606, end: 20110726
  3. TEMSIROLIMUS [Suspect]
     Indication: MALIGNANT MELANOMA OF SITES OTHER THAN SKIN
     Route: 042
     Dates: start: 20110502, end: 20110516
  4. METFORMIN [Suspect]
     Indication: TYPE 2 DIABETES MELLITUS
     Route: 048
     Dates: start: 20100901, end: 20110728
  5. AMLODIPINE BESILATE [Concomitant]
     Indication: HYPERTENSION
     Dates: start: 20110502
  6. OXYCODONE [Concomitant]
     Indication: PAIN
     Dates: start: 20110613
  7. GLIPIZIDE [Concomitant]
     Indication: TYPE 2 DIABETES MELLITUS
     Dates: start: 20110304
  8. ONDANSETRON [Concomitant]
     Indication: NAUSEA
     Dates: start: 20110521

REACTIONS (2)
  - Small intestinal obstruction [Recovered/Resolved]
  - Acidosis [Not Recovered/Not Resolved]
